FAERS Safety Report 7600898-X (Version None)
Quarter: 2011Q2

REPORT INFORMATION
  Report Type: 
  Country: None (occurrence: None)
  Receive Date: 20110629
  Receipt Date: 20110615
  Transmission Date: 20111010
  Serious: Yes (Death, Hospitalization, Other)
  Sender: FDA-Public Use
  Company Number: 2011MA007229

PATIENT
  Age: 30 Year
  Sex: Female

DRUGS (3)
  1. QUININE SULFATE [Suspect]
  2. FEVERALL [Suspect]
  3. IBUPROFEN [Suspect]

REACTIONS (7)
  - BLOOD SODIUM INCREASED [None]
  - WHITE BLOOD CELL COUNT DECREASED [None]
  - PULMONARY CONGESTION [None]
  - OEDEMA [None]
  - TOXIC EPIDERMAL NECROLYSIS [None]
  - ANAEMIA [None]
  - RENAL IMPAIRMENT [None]
